FAERS Safety Report 21616479 (Version 1)
Quarter: 2022Q4

REPORT INFORMATION
  Report Type: Spontaneous
  Country: JP (occurrence: JP)
  Receive Date: 20221118
  Receipt Date: 20221118
  Transmission Date: 20230113
  Serious: Yes (Hospitalization, Other)
  Sender: FDA-Public Use
  Company Number: JP-ANIPHARMA-2022-JP-000477

PATIENT
  Age: 56 Year
  Sex: Male

DRUGS (2)
  1. FUROSEMIDE [Suspect]
     Active Substance: FUROSEMIDE
     Indication: Cardiac failure
     Dosage: 10 MG DAILY
  2. BISOPROLOL [Concomitant]
     Active Substance: BISOPROLOL
     Dosage: 0.625 MG DAILY

REACTIONS (2)
  - Vitamin B1 deficiency [Recovered/Resolved]
  - Polyneuropathy [Recovered/Resolved]
